FAERS Safety Report 21991477 (Version 2)
Quarter: 2023Q1

REPORT INFORMATION
  Report Type: Spontaneous
  Country: FR (occurrence: FR)
  Receive Date: 20230214
  Receipt Date: 20230223
  Transmission Date: 20230418
  Serious: Yes (Other)
  Sender: FDA-Public Use
  Company Number: None

PATIENT
  Age: 41 Year
  Sex: Male

DRUGS (2)
  1. VERAPAMIL HYDROCHLORIDE [Suspect]
     Active Substance: VERAPAMIL HYDROCHLORIDE
     Indication: Cluster headache
     Dosage: INCREASE UNTIL INTAKE 480MG MORNING,EVENING
     Route: 048
     Dates: start: 20221108, end: 20221221
  2. VERAPAMIL [Suspect]
     Active Substance: VERAPAMIL HYDROCHLORIDE
     Indication: Cluster headache
     Dosage: NOT ADMINISTERED
     Route: 048
     Dates: start: 20221108

REACTIONS (4)
  - Bradycardia [Recovered/Resolved]
  - Oedema peripheral [Recovered/Resolved]
  - Accidental overdose [Recovered/Resolved]
  - Product dispensing error [Recovered/Resolved]

NARRATIVE: CASE EVENT DATE: 20221108
